FAERS Safety Report 25708704 (Version 1)
Quarter: 2025Q3

REPORT INFORMATION
  Report Type: Spontaneous
  Country: GB (occurrence: GB)
  Receive Date: 20250821
  Receipt Date: 20250821
  Transmission Date: 20251021
  Serious: Yes (Other)
  Sender: DR REDDYS
  Company Number: None

PATIENT
  Age: 46 Year
  Sex: Female
  Weight: 65 kg

DRUGS (2)
  1. SUMATRIPTAN [Suspect]
     Active Substance: SUMATRIPTAN
     Indication: Product used for unknown indication
     Dates: start: 20250305, end: 20250811
  2. Dimetrum [Concomitant]
     Indication: Product used for unknown indication
     Dates: start: 20230206

REACTIONS (5)
  - Cognitive disorder [Unknown]
  - Burning sensation [Recovered/Resolved]
  - Hypoaesthesia [Unknown]
  - Paraesthesia [Unknown]
  - Head discomfort [Unknown]

NARRATIVE: CASE EVENT DATE: 20250711
